FAERS Safety Report 9506501 (Version 1)
Quarter: 2013Q3

REPORT INFORMATION
  Report Type: Spontaneous
  Country: FR (occurrence: None)
  Receive Date: 20130904
  Receipt Date: 20130904
  Transmission Date: 20140515
  Serious: Yes (Hospitalization)
  Sender: FDA-Public Use
  Company Number: DEM-2013-00786

PATIENT
  Age: 51 Year
  Sex: Male

DRUGS (6)
  1. ALTEIS [Suspect]
     Indication: PRODUCT USED FOR UNKNOWN INDICATION
     Route: 048
  2. KLIPAL CODEINE [Suspect]
     Indication: PRODUCT USED FOR UNKNOWN INDICATION
     Route: 048
  3. PARIET [Suspect]
     Indication: PRODUCT USED FOR UNKNOWN INDICATION
     Dosage: (20 MG, 1 IN 1 D), ORAL
     Route: 048
  4. SEROPLEX [Suspect]
     Indication: PRODUCT USED FOR UNKNOWN INDICATION
     Dosage: (10 MG, 1 IN 1 D), ORAL
     Route: 048
  5. AERIUS (DESLORATADINE) [Suspect]
     Indication: PRODUCT USED FOR UNKNOWN INDICATION
     Dosage: (1 DOSAGE FORMS, 1 IN 1 D), ORAL?
     Route: 048
  6. CACIT D3 [Suspect]
     Indication: PRODUCT USED FOR UNKNOWN INDICATION
     Route: 048

REACTIONS (6)
  - Malaise [None]
  - Syncope [None]
  - Dizziness [None]
  - Incorrect dose administered [None]
  - Asthenia [None]
  - Glomerular filtration rate decreased [None]
